FAERS Safety Report 7971544-0 (Version None)
Quarter: 2011Q4

REPORT INFORMATION
  Report Type: 
  Country: None (occurrence: None)
  Receive Date: 20111212
  Receipt Date: 20111207
  Transmission Date: 20120403
  Serious: Yes (Life-Threatening, Hospitalization)
  Sender: FDA-Public Use
  Company Number: RU-ASTRAZENECA-2011SE74292

PATIENT

DRUGS (3)
  1. NEXIUM [Suspect]
     Indication: GASTRIC ULCER
     Route: 048
     Dates: start: 20110101
  2. AMOXICILLIN [Concomitant]
     Indication: GASTRIC ULCER
     Route: 048
     Dates: start: 20110101
  3. CLARITHROMYCIN [Concomitant]
     Indication: GASTRIC ULCER
     Route: 048
     Dates: start: 20110101

REACTIONS (1)
  - RENAL FAILURE ACUTE [None]
